FAERS Safety Report 22190118 (Version 1)
Quarter: 2023Q2

REPORT INFORMATION
  Report Type: Spontaneous
  Country: US (occurrence: US)
  Receive Date: 20230410
  Receipt Date: 20230410
  Transmission Date: 20230722
  Serious: Yes (Hospitalization, Other)
  Sender: FDA-Public Use
  Company Number: US-SA-SAC20230407000224

PATIENT
  Age: 47 Year
  Sex: Male
  Weight: 67.12 kg

DRUGS (23)
  1. FABRAZYME [Suspect]
     Active Substance: AGALSIDASE BETA
     Indication: Fabry^s disease
     Dosage: 85 MG, QW
     Route: 042
     Dates: start: 20080212
  2. ATIVAN [Concomitant]
     Active Substance: LORAZEPAM
  3. NORVASC [Concomitant]
     Active Substance: AMLODIPINE BESYLATE
  4. NEURONTIN [Concomitant]
     Active Substance: GABAPENTIN
  5. EPINEPHRINE [Concomitant]
     Active Substance: EPINEPHRINE
  6. COZAAR [Concomitant]
     Active Substance: LOSARTAN POTASSIUM
  7. PREDNISONE [Concomitant]
     Active Substance: PREDNISONE
  8. LIVALO [Concomitant]
     Active Substance: PITAVASTATIN CALCIUM
  9. PROGRAF [Concomitant]
     Active Substance: TACROLIMUS
  10. STERILE WATER [Concomitant]
     Active Substance: WATER
  11. TEGRETOL [Concomitant]
     Active Substance: CARBAMAZEPINE
  12. PERCOCET [Concomitant]
     Active Substance: ACETAMINOPHEN\OXYCODONE HYDROCHLORIDE
  13. SODIUM CHLORIDE [Concomitant]
     Active Substance: SODIUM CHLORIDE
  14. ASPIRIN [Concomitant]
     Active Substance: ASPIRIN
  15. NEXIUM [Concomitant]
     Active Substance: ESOMEPRAZOLE MAGNESIUM
  16. VITAMIN D3 [Concomitant]
     Active Substance: CHOLECALCIFEROL
  17. PROAIR HFA [Concomitant]
     Active Substance: ALBUTEROL SULFATE
  18. SODIUM CHLORIDE [Concomitant]
     Active Substance: SODIUM CHLORIDE
  19. XYZAL [Concomitant]
     Active Substance: LEVOCETIRIZINE DIHYDROCHLORIDE
  20. CARAFATE [Concomitant]
     Active Substance: SUCRALFATE
  21. DURAGESIC [Concomitant]
     Active Substance: FENTANYL
  22. TORSEMIDE [Concomitant]
     Active Substance: TORSEMIDE
  23. ADVAIR HFA [Concomitant]
     Active Substance: FLUTICASONE PROPIONATE\SALMETEROL XINAFOATE

REACTIONS (3)
  - Septic shock [Unknown]
  - Pneumonia [Unknown]
  - Inappropriate schedule of product administration [Unknown]

NARRATIVE: CASE EVENT DATE: 20080212
